FAERS Safety Report 20068261 (Version 4)
Quarter: 2021Q4

REPORT INFORMATION
  Report Type: Spontaneous
  Country: RS (occurrence: None)
  Receive Date: 20211115
  Receipt Date: 20211201
  Transmission Date: 20220303
  Serious: Yes (Hospitalization, Other)
  Sender: FDA-Public Use
  Company Number: RS-ROCHE-2954201

PATIENT
  Age: 55 Year
  Sex: Male

DRUGS (2)
  1. MABTHERA [Suspect]
     Active Substance: RITUXIMAB
     Indication: Product used for unknown indication
     Dosage: 1400 MG/11.7 ML
     Route: 065
  2. POLIVY [Suspect]
     Active Substance: POLATUZUMAB VEDOTIN-PIIQ
     Indication: Product used for unknown indication
     Route: 065

REACTIONS (14)
  - Drug ineffective [Unknown]
  - Febrile neutropenia [Unknown]
  - Weight increased [Unknown]
  - COVID-19 [Unknown]
  - Gastric ulcer perforation [Unknown]
  - Peritonitis [Unknown]
  - Diarrhoea [Unknown]
  - Disease progression [Unknown]
  - Anaemia [Unknown]
  - Thrombocytopenia [Unknown]
  - Abdominal distension [Unknown]
  - Ejection fraction decreased [Unknown]
  - Anaemia [Unknown]
  - Diarrhoea [Unknown]

NARRATIVE: CASE EVENT DATE: 20200101
